FAERS Safety Report 7099716-0 (Version None)
Quarter: 2010Q4

REPORT INFORMATION
  Report Type: 
  Country: None (occurrence: None)
  Receive Date: 20101112
  Receipt Date: 20081201
  Transmission Date: 20110411
  Serious: No
  Sender: FDA-Public Use
  Company Number: US-KINGPHARMUSA00001-K200801359

PATIENT
  Sex: Female
  Weight: 72.562 kg

DRUGS (6)
  1. AVINZA [Suspect]
     Indication: PAIN
     Dosage: 90 MG, QD
     Route: 048
  2. AVINZA [Suspect]
     Dosage: 60 MG, QD
     Route: 048
     Dates: end: 20080401
  3. AVINZA [Suspect]
     Dosage: 30 MG, QD
     Route: 048
     Dates: end: 20080401
  4. MORPHINE SULFATE [Suspect]
     Indication: PAIN
     Dosage: UNK, QD
     Route: 048
     Dates: start: 20071201
  5. LORTAB [Concomitant]
     Dosage: 20 MG, QD
     Route: 048
  6. LORTAB [Concomitant]
     Dosage: 10 MG, QD
     Route: 048

REACTIONS (6)
  - BURNING SENSATION [None]
  - FATIGUE [None]
  - MOUTH HAEMORRHAGE [None]
  - SWOLLEN TONGUE [None]
  - THROAT IRRITATION [None]
  - TONGUE HAEMORRHAGE [None]
